FAERS Safety Report 4392636-1 (Version None)
Quarter: 2004Q3

REPORT INFORMATION
  Report Type: 
  Country: None (occurrence: None)
  Receive Date: 20040701
  Receipt Date: 20040621
  Transmission Date: 20050211
  Serious: Yes (Other)
  Sender: FDA-Public Use
  Company Number: 2004US000708

PATIENT
  Sex: Male

DRUGS (1)
  1. ADENOSCAN [Suspect]
     Indication: SCAN MYOCARDIAL PERFUSION
     Dates: start: 20040618, end: 20040618

REACTIONS (3)
  - BACK PAIN [None]
  - BACTERIAL SEPSIS [None]
  - NECK PAIN [None]
